FAERS Safety Report 7530753-5 (Version None)
Quarter: 2011Q2

REPORT INFORMATION
  Report Type: 
  Country: None (occurrence: None)
  Receive Date: 20110607
  Receipt Date: 20110601
  Transmission Date: 20111010
  Serious: Yes (Hospitalization)
  Sender: FDA-Public Use
  Company Number: US-ABBOTT-11P-163-0729761-00

PATIENT
  Sex: Female
  Weight: 56.296 kg

DRUGS (4)
  1. HUMIRA [Suspect]
     Indication: CROHN'S DISEASE
     Dates: start: 20101001
  2. CLARITIN [Concomitant]
     Indication: HYPERSENSITIVITY
  3. MULTIPLE VITAMINS [Concomitant]
     Indication: VITAMIN SUPPLEMENTATION
  4. ZOLOFT [Concomitant]
     Indication: DEPRESSION

REACTIONS (4)
  - ABDOMINAL DISTENSION [None]
  - CROHN'S DISEASE [None]
  - DRUG INEFFECTIVE [None]
  - NAUSEA [None]
